FAERS Safety Report 8098142 (Version 8)
Quarter: 2015Q2

REPORT INFORMATION
  Report Type: Spontaneous
  Country: US (occurrence: US)
  Receive Date: 20110810
  Receipt Date: 20150421
  Transmission Date: 20150821
  Serious: Yes (Hospitalization, Other)
  Sender: FDA-Public Use
  Company Number: US-009507513-2011SP002479

PATIENT
  Sex: Female
  Weight: 62.14 kg

DRUGS (3)
  1. NUVARING [Suspect]
     Active Substance: ETHINYL ESTRADIOL\ETONOGESTREL
     Indication: MENSTRUATION IRREGULAR
  2. NUVARING [Suspect]
     Active Substance: ETHINYL ESTRADIOL\ETONOGESTREL
     Indication: CONTRACEPTION
     Dosage: UNK
     Route: 067
     Dates: start: 20060121, end: 20061107
  3. VALTREX [Concomitant]
     Active Substance: VALACYCLOVIR HYDROCHLORIDE
     Indication: ANTIVIRAL PROPHYLAXIS
     Dates: start: 20061017, end: 20061126

REACTIONS (14)
  - Peripheral swelling [Unknown]
  - Hypercoagulation [Not Recovered/Not Resolved]
  - Cervical dysplasia [Unknown]
  - Off label use [Unknown]
  - Mental disorder [Unknown]
  - Pain in extremity [Unknown]
  - Deep vein thrombosis [Recovered/Resolved with Sequelae]
  - Pulmonary embolism [Unknown]
  - Emotional disorder [Unknown]
  - Pulmonary mass [Unknown]
  - Dental care [Unknown]
  - Pain [Unknown]
  - Headache [Unknown]
  - Orthostatic hypotension [Unknown]

NARRATIVE: CASE EVENT DATE: 2006
